FAERS Safety Report 7026528-6 (Version None)
Quarter: 2010Q4

REPORT INFORMATION
  Report Type: 
  Country: None (occurrence: None)
  Receive Date: 20101004
  Receipt Date: 20100929
  Transmission Date: 20110411
  Serious: Yes (Hospitalization)
  Sender: FDA-Public Use
  Company Number: SE-EISAI INC.-E2020-07605-SPO-SE

PATIENT
  Sex: Male

DRUGS (9)
  1. ARICEPT [Suspect]
     Indication: DEMENTIA
     Route: 048
     Dates: start: 20100301, end: 20100724
  2. ARICEPT [Suspect]
     Route: 048
     Dates: start: 20100101
  3. METOPROLOL TARTRATE [Suspect]
     Indication: PRODUCT USED FOR UNKNOWN INDICATION
     Dosage: 50 MG DAILY
     Route: 048
     Dates: start: 20060101, end: 20100724
  4. METOPROLOL TARTRATE [Suspect]
     Dosage: 50 MG DAILY
     Route: 048
     Dates: start: 20100101
  5. ATACAND [Concomitant]
     Dosage: 4 MG
  6. RANITIDINE HCL [Concomitant]
  7. SIMVASTATIN [Concomitant]
  8. ASPIRIN [Concomitant]
     Dosage: 75 MG
  9. MADOPARK [Concomitant]
     Dosage: 100MG/25MG

REACTIONS (1)
  - CARDIAC ARREST [None]
